FAERS Safety Report 10489203 (Version 1)
Quarter: 2014Q4

REPORT INFORMATION
  Report Type: Spontaneous
  Country: US (occurrence: US)
  Receive Date: 20141002
  Receipt Date: 20141002
  Transmission Date: 20150528
  Serious: No
  Sender: FDA-Public Use
  Company Number: US-PFIZER INC-2014269502

PATIENT
  Age: 70 Year
  Sex: Female
  Weight: 106.58 kg

DRUGS (1)
  1. LYRICA [Suspect]
     Active Substance: PREGABALIN
     Dosage: 50 MG, 3X/DAY

REACTIONS (3)
  - Back pain [Recovered/Resolved]
  - Myalgia [Recovered/Resolved]
  - Chest pain [Recovered/Resolved]
